FAERS Safety Report 6010810-5 (Version None)
Quarter: 2008Q4

REPORT INFORMATION
  Report Type: 
  Country: None (occurrence: None)
  Receive Date: 20081218
  Receipt Date: 20081210
  Transmission Date: 20090506
  Serious: Yes (Hospitalization)
  Sender: FDA-Public Use
  Company Number: PHHY2008FR31697

PATIENT

DRUGS (7)
  1. EXELON [Suspect]
     Indication: DEMENTIA WITH LEWY BODIES
     Dosage: UNK
     Route: 062
     Dates: start: 20080401
  2. AUGMENTIN '125' [Concomitant]
  3. LASIX [Concomitant]
  4. PREVISCAN [Concomitant]
  5. RISPERDAL [Concomitant]
  6. EFFEXOR [Concomitant]
  7. VASTAREL [Concomitant]

REACTIONS (2)
  - DIARRHOEA [None]
  - SIGMOIDITIS [None]
